FAERS Safety Report 24984131 (Version 1)
Quarter: 2025Q1

REPORT INFORMATION
  Report Type: Spontaneous
  Country: US (occurrence: US)
  Receive Date: 20250219
  Receipt Date: 20250219
  Transmission Date: 20250408
  Serious: No
  Sender: ROCHE
  Company Number: US-ROCHE-10000193738

PATIENT
  Age: 17 Year
  Sex: Female
  Weight: 81.65 kg

DRUGS (5)
  1. XOLAIR PFS [Suspect]
     Active Substance: OMALIZUMAB
     Indication: Urticaria
     Route: 058
     Dates: start: 202405
  2. XOLAIR PFS [Suspect]
     Active Substance: OMALIZUMAB
     Dosage: TAKES (2) 150 MG SYRINGES EACH TIME
     Route: 058
     Dates: start: 202406
  3. MONTELUKAST [Concomitant]
     Active Substance: MONTELUKAST
     Indication: Urticaria chronic
     Route: 048
  4. ALLEGRA [Concomitant]
     Active Substance: FEXOFENADINE HYDROCHLORIDE
     Indication: Urticaria chronic
     Route: 048
  5. PEPCID [Concomitant]
     Active Substance: FAMOTIDINE
     Indication: Urticaria chronic
     Route: 048

REACTIONS (4)
  - Syringe issue [Unknown]
  - Product quality issue [Unknown]
  - No adverse event [Unknown]
  - Underdose [Unknown]

NARRATIVE: CASE EVENT DATE: 20250110
